FAERS Safety Report 7303744-7 (Version None)
Quarter: 2011Q1

REPORT INFORMATION
  Report Type: 
  Country: None (occurrence: None)
  Receive Date: 20110221
  Receipt Date: 20110211
  Transmission Date: 20110831
  Serious: Yes (Other)
  Sender: FDA-Public Use
  Company Number: GB-ASTRAZENECA-2011SE08628

PATIENT
  Sex: Male

DRUGS (5)
  1. OMEPRAZOLE [Concomitant]
  2. ASPIRIN [Concomitant]
  3. DIMEBON [Concomitant]
  4. ZOLADEX [Suspect]
     Route: 058
     Dates: start: 20101101
  5. ARICEPT [Concomitant]

REACTIONS (2)
  - DEMENTIA ALZHEIMER'S TYPE [None]
  - CONDITION AGGRAVATED [None]
